FAERS Safety Report 17604258 (Version 2)
Quarter: 2020Q4

REPORT INFORMATION
  Report Type: Spontaneous
  Country: NO (occurrence: NO)
  Receive Date: 20200331
  Receipt Date: 20201207
  Transmission Date: 20210113
  Serious: Yes (Hospitalization, Disabling, Other)
  Sender: FDA-Public Use
  Company Number: NO-PFIZER INC-2020129236

PATIENT
  Age: 55 Year
  Sex: Male

DRUGS (18)
  1. LYRICA [Suspect]
     Active Substance: PREGABALIN
     Dosage: STEPPED DOWN TO 75 + 75
     Dates: start: 201104, end: 201106
  2. LYRICA [Suspect]
     Active Substance: PREGABALIN
     Dosage: SATISFIED WITH THE TREATMENT WITH LYRICA DOSAGE 150 + 75 + 75 MG
     Dates: start: 201103, end: 201104
  3. LYRICA [Suspect]
     Active Substance: PREGABALIN
     Dosage: LYRICA REDUCED TO 50MG X 2
     Dates: start: 201306, end: 2014
  4. LYRICA [Suspect]
     Active Substance: PREGABALIN
     Dosage: PLAN WAS TO CONTINUE WITH LYRICA 75 + 75 FOR AT LEAST ANOTHER SIX MONTHS
     Dates: start: 201210, end: 201306
  5. ZOPICLONE [Concomitant]
     Active Substance: ZOPICLONE
     Indication: INSOMNIA
     Dosage: 7.5 MG X1 AT EVENING
     Dates: start: 2010
  6. LYRICA [Suspect]
     Active Substance: PREGABALIN
     Dosage: AGREED REDUCTION OF LYRICA TO 75 MG FOR 2 WEEKS, BEFORE TRIAL DISCONTINUATION
     Dates: start: 201106
  7. LYRICA [Suspect]
     Active Substance: PREGABALIN
     Dosage: IN AUGUST, HE INCREASED LYRICA TO 75 MG X3, AND FURTHER TO 150 + 75 + 75
     Dates: start: 201108, end: 201108
  8. SOBRIL [Concomitant]
     Active Substance: OXAZEPAM
     Dosage: SOBRIL IN THE EVENING
     Dates: start: 201107
  9. TOLVON [Concomitant]
     Active Substance: MIANSERIN
     Indication: INSOMNIA
     Dosage: UNK
     Dates: start: 201201
  10. LYRICA [Suspect]
     Active Substance: PREGABALIN
     Indication: POST-TRAUMATIC STRESS DISORDER
     Dosage: START WITH LYRICA AS MOOD STABILIZER
     Dates: start: 20110107, end: 20110110
  11. LYRICA [Suspect]
     Active Substance: PREGABALIN
     Dosage: FURTHER TO 150 + 75 + 75
     Dates: start: 201108, end: 201201
  12. LYRICA [Suspect]
     Active Substance: PREGABALIN
     Indication: AFFECTIVE DISORDER
     Dosage: DOSE OF LYRICA WAS INCREASED TO 75 MG 2X2
     Dates: start: 20110110, end: 201103
  13. LYRICA [Suspect]
     Active Substance: PREGABALIN
     Dosage: STARTED AGAIN WITH LYRICA IN THE MORNING
     Dates: start: 201107, end: 201108
  14. SAROTEX [Concomitant]
     Active Substance: AMITRIPTYLINE HYDROCHLORIDE
     Dosage: TRIED SAROTEX
     Dates: start: 2013, end: 2013
  15. LYRICA [Suspect]
     Active Substance: PREGABALIN
     Dosage: HE USED LYRICA, IN DOSAGE 150 MG IN THE MORNING, AND PARTLY 75 + 75
     Dates: start: 201201, end: 201210
  16. LYRICA [Suspect]
     Active Substance: PREGABALIN
     Dosage: TAPERING DOWN SCHEME WITH LYRICA. AT A CONSULTATION ON 13APR2015, HE STILL USED A SMALL DOSE OF LYRI
     Dates: start: 2014
  17. OLANZAPIN [Concomitant]
     Active Substance: OLANZAPINE
     Indication: AGITATION
     Dosage: 5 MG UP TO X2
     Dates: start: 2010
  18. APODORM [Concomitant]
     Active Substance: NITRAZEPAM
     Indication: INSOMNIA
     Dosage: UNK
     Dates: start: 201201

REACTIONS (16)
  - Fall [Unknown]
  - Tooth loss [Not Recovered/Not Resolved]
  - Anxiety [Unknown]
  - Dry mouth [Not Recovered/Not Resolved]
  - Weight increased [Unknown]
  - Depression [Unknown]
  - Sexual dysfunction [Unknown]
  - Insomnia [Unknown]
  - Suicidal ideation [Unknown]
  - Speech disorder [Not Recovered/Not Resolved]
  - Restlessness [Unknown]
  - Disorientation [Unknown]
  - Dental restoration failure [Not Recovered/Not Resolved]
  - Food craving [Unknown]
  - Tooth injury [Not Recovered/Not Resolved]
  - Off label use [Unknown]

NARRATIVE: CASE EVENT DATE: 201101
